FAERS Safety Report 7094436-0 (Version None)
Quarter: 2010Q4

REPORT INFORMATION
  Report Type: 
  Country: None (occurrence: None)
  Receive Date: 20101110
  Receipt Date: 20101028
  Transmission Date: 20110411
  Serious: Yes (Other)
  Sender: FDA-Public Use
  Company Number: PHHY2010JP72706

PATIENT
  Age: 61 Year
  Sex: Male

DRUGS (3)
  1. ZOMETA [Suspect]
     Indication: METASTASES TO BONE
     Dosage: 4 MG, QMO
     Route: 041
     Dates: start: 20091001
  2. SUNITINIB MALATE [Suspect]
     Dosage: 50 MG, UNK
     Route: 048
     Dates: start: 20091001
  3. INTERFERON ALFA [Concomitant]
     Indication: RENAL CANCER
     Dosage: 6MIU
     Dates: start: 20090901

REACTIONS (2)
  - HYPOTHYROIDISM [None]
  - PALMAR-PLANTAR ERYTHRODYSAESTHESIA SYNDROME [None]
